FAERS Safety Report 11234470 (Version 1)
Quarter: 2015Q3

REPORT INFORMATION
  Report Type: Spontaneous
  Country: US (occurrence: US)
  Receive Date: 20150702
  Receipt Date: 20150702
  Transmission Date: 20151125
  Serious: Yes (Other)
  Sender: FDA-Public Use
  Company Number: US-AMGEN-USASP2015063553

PATIENT
  Age: 60 Year
  Sex: Female

DRUGS (1)
  1. BLINCYTO [Suspect]
     Active Substance: BLINATUMOMAB
     Indication: ACUTE LYMPHOCYTIC LEUKAEMIA
     Dosage: UNK
     Route: 065
     Dates: start: 20150623

REACTIONS (5)
  - Loss of consciousness [Unknown]
  - White blood cell count abnormal [Unknown]
  - Blood pressure abnormal [Unknown]
  - Blast cell count increased [Unknown]
  - Pyrexia [Unknown]
